FAERS Safety Report 10762187 (Version 1)
Quarter: 2015Q1

REPORT INFORMATION
  Report Type: Other
  Country: US (occurrence: US)
  Receive Date: 20150204
  Receipt Date: 20150204
  Transmission Date: 20150721
  Serious: No
  Sender: FDA-Public Use
  Company Number: US-ACORDA-ACO_102450_2014

PATIENT
  Sex: Female
  Weight: 53.97 kg

DRUGS (7)
  1. AVONEX [Concomitant]
     Active Substance: INTERFERON BETA-1A
     Dosage: UNK
     Dates: start: 2009, end: 201305
  2. CALCITROL [Concomitant]
     Active Substance: CALCITRIOL
     Dosage: UNK
  3. DIOVAN [Concomitant]
     Active Substance: VALSARTAN
     Dosage: UNK
  4. ZANAFLEX [Suspect]
     Active Substance: TIZANIDINE HYDROCHLORIDE
     Dosage: UNK
  5. ZOCOR [Concomitant]
     Active Substance: SIMVASTATIN
     Dosage: UNK
  6. AMPYRA [Suspect]
     Active Substance: DALFAMPRIDINE
     Indication: GAIT DISTURBANCE
     Dosage: 10 MG, BID
     Route: 048
     Dates: start: 201212, end: 2013
  7. AMPYRA [Suspect]
     Active Substance: DALFAMPRIDINE
     Dosage: 10 MG, BID
     Dates: start: 2013

REACTIONS (1)
  - Alopecia [Recovered/Resolved]
